FAERS Safety Report 5364799-2 (Version None)
Quarter: 2007Q2

REPORT INFORMATION
  Report Type: 
  Country: None (occurrence: None)
  Receive Date: 20070615
  Receipt Date: 20070531
  Transmission Date: 20071010
  Serious: Yes (Hospitalization)
  Sender: FDA-Public Use
  Company Number: 8024439

PATIENT
  Age: 41 Year
  Sex: Male

DRUGS (7)
  1. KEPPRA [Suspect]
     Dosage: 500 MG 3/D; PO
     Route: 048
  2. METHADONE HCL [Suspect]
     Indication: DRUG DETOXIFICATION
     Dosage: 65 MG/D; PO
     Route: 048
  3. REVIA [Suspect]
     Dosage: 50 MG TWICE; PO
     Route: 048
     Dates: start: 20070302, end: 20070302
  4. REVIA [Suspect]
     Dosage: 50 MG ONCE;PO
     Route: 048
     Dates: start: 20070325, end: 20070325
  5. ZYPREXA [Concomitant]
  6. EFFEXOR [Concomitant]
  7. ATHYMIL [Concomitant]

REACTIONS (9)
  - ABDOMINAL PAIN [None]
  - BALANCE DISORDER [None]
  - CHILLS [None]
  - DEHYDRATION [None]
  - DIARRHOEA [None]
  - HYPERHIDROSIS [None]
  - PSYCHOTIC DISORDER [None]
  - SELF-MEDICATION [None]
  - TREMOR [None]
